FAERS Safety Report 25114077 (Version 9)
Quarter: 2025Q4

REPORT INFORMATION
  Report Type: Report from Study
  Country: US (occurrence: US)
  Receive Date: 20250324
  Receipt Date: 20251226
  Transmission Date: 20260117
  Serious: Yes (Other)
  Sender: ABBVIE
  Company Number: US-ABBVIE-6187793

PATIENT
  Age: 62 Year
  Sex: Male

DRUGS (4)
  1. RINVOQ [Suspect]
     Active Substance: UPADACITINIB
     Indication: Crohn^s disease
     Route: 048
     Dates: start: 20240622, end: 202505
  2. RINVOQ [Suspect]
     Active Substance: UPADACITINIB
     Indication: Crohn^s disease
     Route: 048
     Dates: start: 202506, end: 2025
  3. RINVOQ [Suspect]
     Active Substance: UPADACITINIB
     Indication: Crohn^s disease
     Route: 048
     Dates: start: 2025, end: 2025
  4. RINVOQ [Suspect]
     Active Substance: UPADACITINIB
     Indication: Crohn^s disease
     Route: 048
     Dates: start: 2025, end: 20251215

REACTIONS (10)
  - Recurrent cancer [Not Recovered/Not Resolved]
  - Crohn^s disease [Recovering/Resolving]
  - Periorbital swelling [Unknown]
  - Skin cancer [Recovered/Resolved with Sequelae]
  - Cancer pain [Unknown]
  - Swelling face [Unknown]
  - Facial discomfort [Unknown]
  - Post procedural infection [Recovering/Resolving]
  - Skin disorder [Recovering/Resolving]
  - Visual impairment [Unknown]

NARRATIVE: CASE EVENT DATE: 20250101
